FAERS Safety Report 19862547 (Version 7)
Quarter: 2024Q1

REPORT INFORMATION
  Report Type: Spontaneous
  Country: US (occurrence: US)
  Receive Date: 20210921
  Receipt Date: 20240307
  Transmission Date: 20240410
  Serious: Yes (Hospitalization, Other)
  Sender: FDA-Public Use
  Company Number: US-PFIZER INC-2021676969

PATIENT
  Age: 63 Year
  Sex: Female

DRUGS (3)
  1. XELJANZ [Suspect]
     Active Substance: TOFACITINIB CITRATE
     Indication: Rheumatoid arthritis
     Dosage: 5 MG
  2. XELJANZ [Suspect]
     Active Substance: TOFACITINIB CITRATE
     Dosage: 5 MG, 2X/DAY (5MG PO BID (60 TABLETS))
     Route: 048
     Dates: start: 202202
  3. XELJANZ [Suspect]
     Active Substance: TOFACITINIB CITRATE
     Dosage: 5 MG, DAILY (5MG PO QD (30 TABLETS, 60 TABLETS FOR PATIENT ASSISTANCE PROGRAM)
     Route: 048

REACTIONS (11)
  - Osteomyelitis [Unknown]
  - Craniofacial fracture [Unknown]
  - Fall [Unknown]
  - Skin laceration [Unknown]
  - Gait disturbance [Unknown]
  - Product prescribing error [Unknown]
  - Pain [Not Recovered/Not Resolved]
  - Inflammation [Unknown]
  - Liver disorder [Unknown]
  - Illness [Unknown]
  - Therapeutic product effect incomplete [Unknown]
